FAERS Safety Report 11047269 (Version 1)
Quarter: 2015Q2

REPORT INFORMATION
  Report Type: Spontaneous
  Country: BR (occurrence: BR)
  Receive Date: 20150420
  Receipt Date: 20150420
  Transmission Date: 20150821
  Serious: Yes (Hospitalization)
  Sender: FDA-Public Use
  Company Number: BR-SA-2015SA047395

PATIENT
  Age: 50 Year
  Sex: Male
  Weight: 79 kg

DRUGS (17)
  1. CLEXANE [Suspect]
     Active Substance: ENOXAPARIN SODIUM
     Route: 065
  2. FAULDFLUOR [Suspect]
     Active Substance: FLUOROURACIL
     Indication: PANCREATIC CARCINOMA
     Dosage: DOSE: 765MG (BOLUS INFUSION) + 4593.6 MG
     Route: 065
     Dates: start: 20141227, end: 20141229
  3. HUMALOG [Concomitant]
     Active Substance: INSULIN LISPRO
  4. KYTRIL [Concomitant]
     Active Substance: GRANISETRON HYDROCHLORIDE
  5. TEVAOXALI [Suspect]
     Active Substance: OXALIPLATIN
     Indication: PANCREATIC CARCINOMA
     Route: 065
     Dates: start: 20141210
  6. GABAPENTIN. [Concomitant]
     Active Substance: GABAPENTIN
     Dosage: FREQUENCY: 12/12 H
  7. FAULDFLUOR [Suspect]
     Active Substance: FLUOROURACIL
     Indication: PANCREATIC CARCINOMA
     Dosage: DOSE: 765MG (BOLUS INFUSION) + 4593.6 MG
     Route: 065
     Dates: start: 20141210
  8. FAULDLEUCO [Suspect]
     Active Substance: LEUCOVORIN CALCIUM
     Indication: PANCREATIC CARCINOMA
     Route: 065
     Dates: start: 20141210
  9. FAULDLEUCO [Suspect]
     Active Substance: LEUCOVORIN CALCIUM
     Indication: PANCREATIC CARCINOMA
     Route: 065
     Dates: start: 20141227, end: 20141229
  10. SIMETHICONE [Concomitant]
     Active Substance: DIMETHICONE\SILICON DIOXIDE\SIMETHICONE
     Dosage: FREQUENCY: 8/8H
  11. DEXAMETHASONE. [Concomitant]
     Active Substance: DEXAMETHASONE
  12. DAFLON [Concomitant]
     Active Substance: DIOSMIN\HESPERIDIN
     Dosage: FREQUENCY: 8/8H
  13. TEVAOXALI [Suspect]
     Active Substance: OXALIPLATIN
     Indication: PANCREATIC CARCINOMA
     Route: 065
     Dates: start: 20141227, end: 20141229
  14. EVOTERIN [Suspect]
     Active Substance: IRINOTECAN HYDROCHLORIDE
     Indication: PANCREATIC CARCINOMA
     Route: 065
     Dates: start: 20141210
  15. DIMORF [Concomitant]
     Active Substance: MORPHINE SULFATE
     Dosage: IF REQUIRED
  16. EVOTERIN [Suspect]
     Active Substance: IRINOTECAN HYDROCHLORIDE
     Indication: PANCREATIC CARCINOMA
     Route: 065
     Dates: start: 20141227, end: 20141229
  17. TRADJENTA [Concomitant]
     Active Substance: LINAGLIPTIN

REACTIONS (3)
  - Nausea [Recovered/Resolved]
  - Febrile neutropenia [Recovered/Resolved]
  - Vomiting [Recovered/Resolved]

NARRATIVE: CASE EVENT DATE: 20141210
